FAERS Safety Report 6883516-8 (Version None)
Quarter: 2010Q3

REPORT INFORMATION
  Report Type: 
  Country: None (occurrence: None)
  Receive Date: 20100729
  Receipt Date: 20100723
  Transmission Date: 20110219
  Serious: Yes (Hospitalization)
  Sender: FDA-Public Use
  Company Number: US-B.I. PHARMACEUTICALS,INC./RIDGEFIELD-2010-BP-08361BP

PATIENT
  Age: 52 Year
  Sex: Male

DRUGS (1)
  1. AGGRENOX [Suspect]
     Dates: start: 20100401

REACTIONS (1)
  - CEREBROVASCULAR ACCIDENT [None]
